FAERS Safety Report 7291752-4 (Version None)
Quarter: 2011Q1

REPORT INFORMATION
  Report Type: 
  Country: None (occurrence: None)
  Receive Date: 20110209
  Receipt Date: 20110209
  Transmission Date: 20110831
  Serious: No
  Sender: FDA-Public Use
  Company Number: None

PATIENT
  Sex: Male
  Weight: 122.4712 kg

DRUGS (1)
  1. VENLAFAXINE HCL [Suspect]
     Indication: DEPRESSION
     Dosage: 50 MG 2X DAY PO
     Route: 048
     Dates: start: 20100509, end: 20110207

REACTIONS (6)
  - DRUG DOSE OMISSION [None]
  - CYANOPSIA [None]
  - MITRAL VALVE REPAIR [None]
  - WEIGHT INCREASED [None]
  - PARAESTHESIA [None]
  - ANXIETY [None]
